FAERS Safety Report 22336502 (Version 1)
Quarter: 2023Q2

REPORT INFORMATION
  Report Type: Spontaneous
  Country: US (occurrence: None)
  Receive Date: 20230518
  Receipt Date: 20230518
  Transmission Date: 20230721
  Serious: No
  Sender: FDA-Public Use
  Company Number: US-ROCHE-3169323

PATIENT
  Age: 61 Year
  Sex: Female

DRUGS (5)
  1. ACTEMRA [Suspect]
     Active Substance: TOCILIZUMAB
     Indication: Rheumatoid arthritis
     Dosage: STRENGTH: 162MG/0.9ML
     Route: 058
     Dates: start: 202012, end: 20210318
  2. ACTEMRA [Suspect]
     Active Substance: TOCILIZUMAB
  3. XELJANZ [Concomitant]
     Active Substance: TOFACITINIB CITRATE
  4. COSENTYX [Concomitant]
     Active Substance: SECUKINUMAB
  5. ORENCIA [Concomitant]
     Active Substance: ABATACEPT

REACTIONS (2)
  - Drug ineffective [Unknown]
  - No adverse event [Unknown]

NARRATIVE: CASE EVENT DATE: 20220826
